FAERS Safety Report 5952228-7 (Version None)
Quarter: 2008Q4

REPORT INFORMATION
  Report Type: 
  Country: None (occurrence: None)
  Receive Date: 20081113
  Receipt Date: 20081104
  Transmission Date: 20090506
  Serious: Yes (Hospitalization)
  Sender: FDA-Public Use
  Company Number: NZ-ELI_LILLY_AND_COMPANY-NZ200811000281

PATIENT
  Sex: Female

DRUGS (5)
  1. ZYPREXA [Suspect]
     Indication: BIPOLAR DISORDER
     Dosage: 25 MG, DAILY (1/D)
     Route: 048
     Dates: start: 20070101
  2. VENLAFAXINE HCL [Concomitant]
     Dosage: 375 MG, UNK
  3. LITHIUM [Concomitant]
     Dosage: 1000 MG, UNK
  4. LORAZEPAM [Concomitant]
  5. ZOPLICONE [Concomitant]

REACTIONS (2)
  - GASTROINTESTINAL HYPOMOTILITY [None]
  - OVERDOSE [None]
